FAERS Safety Report 9003200 (Version 2)
Quarter: 2013Q1

REPORT INFORMATION
  Report Type: Spontaneous
  Country: BR (occurrence: BR)
  Receive Date: 20130108
  Receipt Date: 20130204
  Transmission Date: 20140127
  Serious: Yes (Other)
  Sender: FDA-Public Use
  Company Number: PHHY2013BR001677

PATIENT
  Sex: Male

DRUGS (8)
  1. DIOVAN AMLO FIX [Suspect]
     Indication: HYPERTENSION
     Dosage: 1 DF(160 MG VALS/ 5 MG AMLO) QD
     Route: 048
  2. DIOVAN AMLO FIX [Suspect]
     Dosage: 1 DF, (320 MG VALS/ 10 MG AMLO)
     Route: 048
  3. LASIX [Concomitant]
     Indication: OEDEMA
     Dosage: 60 MG, UNK
     Route: 048
  4. ALLOPURINOL [Concomitant]
     Indication: GOUT
     Dosage: 300 MG, DAILY
     Route: 048
  5. SERTRALINE [Concomitant]
     Dosage: 50 MG, DAILY
     Route: 048
  6. SELOZOK [Concomitant]
     Dosage: 100 MG, DAILY
     Route: 048
  7. SOMALGIN [Concomitant]
     Dosage: 100 MG, DAILY
     Route: 048
  8. LANZ [Concomitant]
     Indication: ABDOMINAL DISCOMFORT
     Dosage: 30 MG, DAILY
     Route: 048

REACTIONS (2)
  - Cerebrovascular accident [Recovering/Resolving]
  - Gait disturbance [Recovering/Resolving]
